FAERS Safety Report 15075149 (Version 1)
Quarter: 2018Q2

REPORT INFORMATION
  Report Type: Report from Study
  Country: US (occurrence: US)
  Receive Date: 20180627
  Receipt Date: 20180627
  Transmission Date: 20180711
  Serious: No
  Sender: FDA-Public Use
  Company Number: US-SAOL THERAPEUTICS-2018SAO00013

PATIENT
  Age: 60 Year
  Sex: Female

DRUGS (18)
  1. COMPOUNDED BACLOFEN [Suspect]
     Active Substance: BACLOFEN
     Dosage: 161.72 ?G, \DAY; MAX DOSE
     Route: 037
     Dates: start: 20171116
  2. COMPOUNDED BACLOFEN [Suspect]
     Active Substance: BACLOFEN
     Dosage: 109.65 ?G, \DAY
     Route: 037
     Dates: start: 20160519, end: 20170216
  3. COMPOUNDED BACLOFEN [Suspect]
     Active Substance: BACLOFEN
     Dosage: 112.39 ?G, \DAY
     Route: 037
     Dates: start: 20171116
  4. DILAUDID [Suspect]
     Active Substance: HYDROMORPHONE HYDROCHLORIDE
     Dosage: 1.949 MG, \DAY
     Route: 037
     Dates: start: 20160519, end: 20170216
  5. DILAUDID [Suspect]
     Active Substance: HYDROMORPHONE HYDROCHLORIDE
     Dosage: 3.131 MG, \DAY; MAX DOSE
     Route: 037
     Dates: start: 20160519, end: 20170216
  6. DILAUDID [Suspect]
     Active Substance: HYDROMORPHONE HYDROCHLORIDE
     Dosage: 1.998 MG, \DAY
     Route: 037
     Dates: start: 20170216, end: 20171116
  7. DILAUDID [Suspect]
     Active Substance: HYDROMORPHONE HYDROCHLORIDE
     Dosage: 1.998 MG, \DAY
     Route: 037
     Dates: start: 20171116
  8. BUPIVACAINE. [Suspect]
     Active Substance: BUPIVACAINE
     Dosage: 7.830 MG, \DAY
     Route: 037
     Dates: start: 20160519, end: 20170216
  9. BUPIVACAINE. [Suspect]
     Active Substance: BUPIVACAINE
     Dosage: 4.995 MG, \DAY
     Route: 037
     Dates: start: 20171116
  10. BUPIVACAINE. [Suspect]
     Active Substance: BUPIVACAINE
     Dosage: 7.188 MG, \DAY; MAX DOSE
     Route: 037
     Dates: start: 20171116
  11. BUPIVACAINE. [Suspect]
     Active Substance: BUPIVACAINE
     Dosage: 7.520 MG, \DAY; MAX DOSE
     Route: 037
     Dates: start: 20170216, end: 20171116
  12. COMPOUNDED BACLOFEN [Suspect]
     Active Substance: BACLOFEN
     Dosage: 176.17 ?G, \DAY; MAX DOSE
     Route: 037
     Dates: start: 20160519, end: 20170216
  13. COMPOUNDED BACLOFEN [Suspect]
     Active Substance: BACLOFEN
     Dosage: 112.39 ?G, \DAY
     Route: 037
     Dates: start: 20170216, end: 20171116
  14. COMPOUNDED BACLOFEN [Suspect]
     Active Substance: BACLOFEN
     Dosage: 169.20 ?G, \DAY; MAX DOSE
     Route: 037
     Dates: start: 20170216, end: 20171116
  15. DILAUDID [Suspect]
     Active Substance: HYDROMORPHONE HYDROCHLORIDE
     Dosage: 3.008 MG, \DAY; MAX DOSE
     Route: 037
     Dates: start: 20170216, end: 20171116
  16. BUPIVACAINE. [Suspect]
     Active Substance: BUPIVACAINE
     Dosage: 4.995 MG, \DAY
     Route: 037
     Dates: start: 20170216, end: 20171116
  17. DILAUDID [Suspect]
     Active Substance: HYDROMORPHONE HYDROCHLORIDE
     Dosage: 2.875 MG, \DAY; MAX DOSE
     Route: 037
     Dates: start: 20171116
  18. BUPIVACAINE. [Suspect]
     Active Substance: BUPIVACAINE
     Dosage: 4.873 MG, \DAY
     Route: 037
     Dates: start: 20160519, end: 20170216

REACTIONS (2)
  - Hypoaesthesia [Not Recovered/Not Resolved]
  - Pain [Recovered/Resolved]

NARRATIVE: CASE EVENT DATE: 20160718
